FAERS Safety Report 16468649 (Version 1)
Quarter: 2019Q2

REPORT INFORMATION
  Report Type: Report from Study
  Country: JP (occurrence: JP)
  Receive Date: 20190624
  Receipt Date: 20190624
  Transmission Date: 20190711
  Serious: No
  Sender: FDA-Public Use
  Company Number: JP-VIFOR (INTERNATIONAL) INC.-VIT-2017-10255

PATIENT
  Age: 74 Year
  Sex: Female
  Weight: 42.6 kg

DRUGS (25)
  1. SELECTOL [Concomitant]
     Active Substance: CELIPROLOL
     Route: 048
  2. ADALAT CC [Concomitant]
     Active Substance: NIFEDIPINE
     Route: 048
  3. MEILAX [Concomitant]
     Active Substance: ETHYL LOFLAZEPATE
     Route: 048
  4. VELPHORO [Suspect]
     Active Substance: FERRIC OXYHYDROXIDE
     Route: 048
     Dates: start: 20170408
  5. THYRADIN-S [Concomitant]
     Active Substance: LEVOTHYROXINE
     Route: 048
  6. HIRUDOID [Concomitant]
     Active Substance: GLYCOSAMINOGLYCANS
     Route: 050
  7. VELPHORO [Suspect]
     Active Substance: FERRIC OXYHYDROXIDE
     Indication: HYPERPHOSPHATAEMIA
     Route: 048
     Dates: start: 20170203, end: 20170407
  8. ALFAROL [Concomitant]
     Active Substance: ALFACALCIDOL
     Route: 048
  9. ALLELOCK [Concomitant]
     Active Substance: OLOPATADINE HYDROCHLORIDE
     Route: 048
  10. NESP [Concomitant]
     Active Substance: DARBEPOETIN ALFA
     Dates: start: 20170127
  11. EMLA [Concomitant]
     Active Substance: LIDOCAINE\PRILOCAINE
     Route: 050
  12. VELPHORO [Suspect]
     Active Substance: FERRIC OXYHYDROXIDE
     Route: 048
     Dates: start: 20170729, end: 20180420
  13. PAXIL [Concomitant]
     Active Substance: PAROXETINE HYDROCHLORIDE
     Route: 048
  14. NESP [Concomitant]
     Active Substance: DARBEPOETIN ALFA
     Dates: end: 20170106
  15. NESP [Concomitant]
     Active Substance: DARBEPOETIN ALFA
     Dates: start: 20170113, end: 20170120
  16. EURAX [Concomitant]
     Active Substance: CROTAMITON
     Route: 050
  17. HALCION [Concomitant]
     Active Substance: TRIAZOLAM
     Route: 048
  18. ANTEBATE [Concomitant]
     Active Substance: BETAMETHASONE DIPROPIONATE
     Route: 050
  19. AMOBAN [Concomitant]
     Active Substance: ZOPICLONE
     Route: 048
     Dates: start: 20170415
  20. NORVASC [Concomitant]
     Active Substance: AMLODIPINE BESYLATE
     Route: 048
     Dates: start: 20171007
  21. MUCOSTA [Concomitant]
     Active Substance: REBAMIPIDE
     Route: 048
  22. MOHRUS TAPE L [Concomitant]
     Active Substance: KETOPROFEN
     Route: 050
  23. SANCOBA [Concomitant]
     Active Substance: CYANOCOBALAMIN
     Route: 050
  24. FEBURIC [Concomitant]
     Active Substance: FEBUXOSTAT
     Route: 048
  25. LANSOPRAZOLE OD [Concomitant]
     Active Substance: LANSOPRAZOLE
     Route: 048

REACTIONS (4)
  - Dialysis [Recovering/Resolving]
  - Faeces discoloured [Recovered/Resolved]
  - Pruritus [Recovering/Resolving]
  - Hypotension [Recovering/Resolving]

NARRATIVE: CASE EVENT DATE: 20170206
